FAERS Safety Report 25209857 (Version 3)
Quarter: 2025Q3

REPORT INFORMATION
  Report Type: Report from Study
  Country: RU (occurrence: RU)
  Receive Date: 20250417
  Receipt Date: 20250715
  Transmission Date: 20251021
  Serious: Yes (Hospitalization)
  Sender: NOVARTIS
  Company Number: RU-002147023-NVSC2025RU063306

PATIENT
  Sex: Female

DRUGS (2)
  1. ALPELISIB [Suspect]
     Active Substance: ALPELISIB
     Indication: Breast cancer stage I
     Route: 065
     Dates: start: 20250117
  2. FULVESTRANT [Concomitant]
     Active Substance: FULVESTRANT
     Indication: Product used for unknown indication
     Route: 065
     Dates: start: 20250117

REACTIONS (9)
  - Diabetes mellitus [Unknown]
  - Asthenia [Unknown]
  - Dry mouth [Unknown]
  - Thirst [Unknown]
  - Pollakiuria [Unknown]
  - Rash [Unknown]
  - Pruritus [Unknown]
  - Diabetic ketoacidosis [Unknown]
  - Hyperglycaemia [Unknown]
